FAERS Safety Report 4724768-X (Version None)
Quarter: 2005Q3

REPORT INFORMATION
  Report Type: 
  Country: None (occurrence: None)
  Receive Date: 20050726
  Receipt Date: 20050714
  Transmission Date: 20060218
  Serious: Yes (Other)
  Sender: FDA-Public Use
  Company Number: NL-GLAXOSMITHKLINE-B0388307A

PATIENT
  Age: 27 Year
  Sex: Female

DRUGS (3)
  1. LAMICTAL [Suspect]
     Indication: DRUG USE FOR UNKNOWN INDICATION
     Dosage: 100MG TWICE PER DAY
     Route: 065
     Dates: start: 20050118
  2. MALARONE [Suspect]
     Indication: MALARIA PROPHYLAXIS
     Dosage: 1TAB PER DAY
     Route: 065
     Dates: start: 20050501
  3. MIRENA [Concomitant]
     Dosage: 20MCG PER DAY
     Route: 065

REACTIONS (7)
  - COMPLEX PARTIAL SEIZURES [None]
  - DIARRHOEA [None]
  - DRUG INEFFECTIVE [None]
  - DRUG INTERACTION [None]
  - GASTROINTESTINAL PAIN [None]
  - HEADACHE [None]
  - ILL-DEFINED DISORDER [None]
